FAERS Safety Report 16848007 (Version 2)
Quarter: 2019Q4

REPORT INFORMATION
  Report Type: Report from Study
  Country: None (occurrence: FI)
  Receive Date: 20190924
  Receipt Date: 20191016
  Transmission Date: 20200122
  Serious: Yes (Other)
  Sender: FDA-Public Use
  Company Number: FI-ABBVIE-19K-055-2934607-00

PATIENT
  Age: 75 Year
  Sex: Female

DRUGS (1)
  1. DUODOPA [Suspect]
     Active Substance: CARBIDOPA\LEVODOPA
     Indication: PARKINSON^S DISEASE
     Dosage: MD 9.0 ML; CONTINUOUS INFUSION 2.7 ML; EXTRA DOSE 2.5 ML; 16H TREATMENT
     Route: 050
     Dates: start: 20190121

REACTIONS (11)
  - Device battery issue [Unknown]
  - Pain [Recovered/Resolved]
  - Device issue [Recovered/Resolved]
  - Asthenia [Unknown]
  - Bunion operation [Not Recovered/Not Resolved]
  - Medical device discomfort [Unknown]
  - Wrong technique in device usage process [Unknown]
  - Post procedural swelling [Not Recovered/Not Resolved]
  - Post procedural inflammation [Not Recovered/Not Resolved]
  - Impaired healing [Not Recovered/Not Resolved]
  - Device issue [Not Recovered/Not Resolved]

NARRATIVE: CASE EVENT DATE: 2019
